FAERS Safety Report 12930965 (Version 1)
Quarter: 2016Q4

REPORT INFORMATION
  Report Type: Spontaneous
  Country: CA (occurrence: CA)
  Receive Date: 20161110
  Receipt Date: 20161110
  Transmission Date: 20170207
  Serious: Yes (Other)
  Sender: FDA-Public Use
  Company Number: CA-BAUSCH-BL-2016-026550

PATIENT
  Age: 68 Year
  Sex: Female
  Weight: 88.53 kg

DRUGS (2)
  1. MESTINON [Suspect]
     Active Substance: PYRIDOSTIGMINE BROMIDE
     Indication: PRODUCT USED FOR UNKNOWN INDICATION
     Route: 065
  2. MESTINON [Suspect]
     Active Substance: PYRIDOSTIGMINE BROMIDE
     Indication: MYASTHENIA GRAVIS
     Dosage: AT NIGHT TIME
     Route: 048
     Dates: start: 200210

REACTIONS (6)
  - Intestinal resection [Unknown]
  - Product solubility abnormal [Not Recovered/Not Resolved]
  - Wrong technique in product usage process [Unknown]
  - Eye disorder [Not Recovered/Not Resolved]
  - Dysphonia [Not Recovered/Not Resolved]
  - Medication residue present [None]

NARRATIVE: CASE EVENT DATE: 2016
